FAERS Safety Report 21067306 (Version 1)
Quarter: 2022Q3

REPORT INFORMATION
  Report Type: Report from Study
  Country: CA (occurrence: CA)
  Receive Date: 20220712
  Receipt Date: 20220712
  Transmission Date: 20221027
  Serious: Yes (Other)
  Sender: FDA-Public Use
  Company Number: CA-ABBVIE-22K-028-4463104-00

PATIENT
  Sex: Female

DRUGS (5)
  1. RINVOQ [Suspect]
     Active Substance: UPADACITINIB
     Indication: Rheumatoid arthritis
     Route: 048
     Dates: start: 20220318, end: 2022
  2. METHOTREXATE [Suspect]
     Active Substance: METHOTREXATE
     Indication: Rheumatoid arthritis
     Route: 065
  3. ARAVA [Concomitant]
     Active Substance: LEFLUNOMIDE
     Indication: Product used for unknown indication
     Dates: end: 202205
  4. ARAVA [Concomitant]
     Active Substance: LEFLUNOMIDE
     Dates: start: 202206
  5. PREDNISONE [Concomitant]
     Active Substance: PREDNISONE
     Indication: Product used for unknown indication

REACTIONS (9)
  - Interstitial lung disease [Unknown]
  - COVID-19 [Unknown]
  - Traumatic lung injury [Unknown]
  - Inflammation [Unknown]
  - Muscular weakness [Unknown]
  - Pain in extremity [Unknown]
  - Peripheral swelling [Unknown]
  - Anti-cyclic citrullinated peptide antibody positive [Unknown]
  - Toxicity to various agents [Unknown]

NARRATIVE: CASE EVENT DATE: 20220101
